FAERS Safety Report 17426001 (Version 2)
Quarter: 2020Q1

REPORT INFORMATION
  Report Type: Spontaneous
  Country: US (occurrence: US)
  Receive Date: 20200217
  Receipt Date: 20200305
  Transmission Date: 20200409
  Serious: Yes (Hospitalization, Other)
  Sender: FDA-Public Use
  Company Number: US-PFIZER INC-2020066613

PATIENT
  Age: 50 Year
  Sex: Female
  Weight: 50 kg

DRUGS (21)
  1. SENEXON [SENNA ALEXANDRINA EXTRACT] [Concomitant]
     Dosage: UNK
  2. ESCITALOPRAM [Concomitant]
     Active Substance: ESCITALOPRAM OXALATE
     Dosage: UNK
  3. METHOCARBAMOL. [Concomitant]
     Active Substance: METHOCARBAMOL
     Dosage: UNK
  4. ROXICODONE [Concomitant]
     Active Substance: OXYCODONE HYDROCHLORIDE
     Indication: PAIN
     Dosage: UNK UNK, AS NEEDED, (1-2 TABS EVERY 4-6 HOURS AS NEEDED)
     Dates: start: 20200203
  5. AMBIEN [Concomitant]
     Active Substance: ZOLPIDEM TARTRATE
     Dosage: 10 MG, AS NEEDED, (TAKE 10 MG BY MOUTH NIGHTLY AS NEEDED.)
     Route: 048
  6. OXYCODONE [Concomitant]
     Active Substance: OXYCODONE
     Dosage: UNK
  7. LETROZOLE. [Concomitant]
     Active Substance: LETROZOLE
     Dosage: UNK
  8. FEMARA [Concomitant]
     Active Substance: LETROZOLE
     Indication: BREAST CANCER FEMALE
     Dosage: 2.5 MG, DAILY, (1 TABLET (2.5 MG TOTAL) BY MOUTH DAILY)
     Route: 048
     Dates: start: 20200215
  9. CORGARD [Concomitant]
     Active Substance: NADOLOL
     Dosage: 20 MG, DAILY
     Route: 048
  10. OSCAL [Concomitant]
     Active Substance: CALCIUM CARBONATE
     Dosage: 600 MG, 2X/DAY [2 (TWO) TIMES DAILY WITH BREAKFAST AND DINNER]
     Route: 048
  11. IBRANCE [Suspect]
     Active Substance: PALBOCICLIB
     Dosage: 75 MG, CYCLIC (DAILY, 3 WEEKS ON 2 WEEKS OFF)
     Route: 048
     Dates: start: 2016
  12. NADOLOL. [Concomitant]
     Active Substance: NADOLOL
     Dosage: UNK
  13. VITAMIN D [COLECALCIFEROL] [Concomitant]
     Active Substance: CHOLECALCIFEROL
     Dosage: 2000 IU, DAILY
     Route: 048
  14. LEXAPRO [Concomitant]
     Active Substance: ESCITALOPRAM OXALATE
     Dosage: 10 MG, 1X/DAY [EVERY MORNING AT 0700]
     Route: 048
  15. IBRANCE [Suspect]
     Active Substance: PALBOCICLIB
     Dosage: 75 MG, CYCLIC (DAILY FOR 21 OUT OF 35 DAYS/ 21 DAYS (DAYS1-21), THEN 14 DAYS OFF)
     Route: 048
     Dates: start: 20200215
  16. IBRANCE [Suspect]
     Active Substance: PALBOCICLIB
     Indication: BREAST CANCER METASTATIC
     Dosage: 125 MG, UNK
  17. FLUOXETINE [Concomitant]
     Active Substance: FLUOXETINE HYDROCHLORIDE
     Dosage: UNK
  18. TYLENOL [Concomitant]
     Active Substance: ACETAMINOPHEN
     Dosage: 975 MG, UNK (975 MG TOTAL, EVERY 6 HOURS)
     Route: 048
     Dates: start: 20200203, end: 20200213
  19. SENNA PLUS [DOCUSATE SODIUM;SENNOSIDE A+B] [Concomitant]
     Dosage: 1 DF, DAILY, (8.6-50 MG TABLET/TAKE 1 TABLET BY MOUTH DAILY)
     Route: 048
     Dates: start: 20200203, end: 20200210
  20. FEMARA [Concomitant]
     Active Substance: LETROZOLE
     Indication: OESTROGEN RECEPTOR POSITIVE BREAST CANCER
  21. MELATONIN [Concomitant]
     Active Substance: MELATONIN
     Dosage: UNK UNK, AS NEEDED, (TAKE BY MOUTH NIGHTLY AS NEEDED.)
     Route: 048

REACTIONS (8)
  - Road traffic accident [Recovered/Resolved with Sequelae]
  - Condition aggravated [Unknown]
  - Sleep disorder [Unknown]
  - Cervical vertebral fracture [Unknown]
  - Blood count abnormal [Unknown]
  - Oral herpes [Unknown]
  - Fatigue [Unknown]
  - Contusion [Unknown]

NARRATIVE: CASE EVENT DATE: 20200119
